FAERS Safety Report 9753559 (Version 1)
Quarter: 2013Q4

REPORT INFORMATION
  Report Type: Spontaneous
  Country: US (occurrence: US)
  Receive Date: 20131213
  Receipt Date: 20131213
  Transmission Date: 20140711
  Serious: Yes (Hospitalization)
  Sender: FDA-Public Use
  Company Number: US-BRISTOL-MYERS SQUIBB COMPANY-19880855

PATIENT
  Age: 75 Year
  Sex: Female
  Weight: 72.56 kg

DRUGS (8)
  1. COUMADIN [Suspect]
     Dates: end: 201006
  2. METOPROLOL [Concomitant]
  3. SOTALOL [Concomitant]
  4. ASPIRIN [Concomitant]
  5. DOXAZOSIN [Concomitant]
  6. HYDROCHLOROTHIAZIDE [Concomitant]
  7. LEVOTHYROXINE [Concomitant]
  8. RAMIPRIL [Concomitant]

REACTIONS (1)
  - Carotid arteriosclerosis [Unknown]
